FAERS Safety Report 6712611-9 (Version None)
Quarter: 2010Q2

REPORT INFORMATION
  Report Type: 
  Country: None (occurrence: None)
  Receive Date: 20100505
  Receipt Date: 20100505
  Transmission Date: 20101027
  Serious: No
  Sender: FDA-Public Use
  Company Number: None

PATIENT
  Sex: Female
  Weight: 83.9154 kg

DRUGS (2)
  1. MULTAQ [Suspect]
     Indication: ATRIAL FIBRILLATION
     Dosage: 400 MG 2X DAY
     Dates: start: 20100406
  2. MULTAQ [Suspect]
     Indication: ATRIAL FIBRILLATION
     Dosage: 400 MG 2X DAY
     Dates: start: 20100407

REACTIONS (7)
  - BLOOD PRESSURE INCREASED [None]
  - BRADYPHRENIA [None]
  - DYSARTHRIA [None]
  - FATIGUE [None]
  - HEADACHE [None]
  - LETHARGY [None]
  - NAUSEA [None]
